FAERS Safety Report 6636953-0 (Version None)
Quarter: 2010Q1

REPORT INFORMATION
  Report Type: 
  Country: None (occurrence: None)
  Receive Date: 20100301
  Receipt Date: 20100203
  Transmission Date: 20100710
  Serious: No
  Sender: FDA-Public Use
  Company Number: 2010-00228

PATIENT
  Age: 80 Year
  Sex: Female
  Weight: 68.0396 kg

DRUGS (11)
  1. ZICAM NASAL PRODUCT [Suspect]
     Dosage: SPORADIC - 4/5 YEARS AGO
  2. FOSAMAX [Concomitant]
  3. DIOVAN HCT [Concomitant]
  4. DILTIAZEM HCL [Concomitant]
  5. CLONIDINE [Concomitant]
  6. SIMVASTATIN [Concomitant]
  7. LEVOXYL [Concomitant]
  8. FLORIDIL MDI [Concomitant]
  9. SEREVENT [Concomitant]
  10. SENIOR MULTIVITAMIN [Concomitant]
  11. CALCIUM WITH VITAMIN D [Concomitant]

REACTIONS (1)
  - ANOSMIA [None]
